FAERS Safety Report 9674189 (Version 2)
Quarter: 2013Q4

REPORT INFORMATION
  Report Type: Spontaneous
  Country: US (occurrence: US)
  Receive Date: 20131106
  Receipt Date: 20131106
  Transmission Date: 20140711
  Serious: No
  Sender: FDA-Public Use
  Company Number: US-AMGEN-USASP2013075438

PATIENT
  Age: 57 Year
  Sex: Female
  Weight: 53.06 kg

DRUGS (11)
  1. ENBREL [Suspect]
     Indication: RHEUMATOID ARTHRITIS
     Dosage: 50 MG, QWK
     Route: 058
  2. METOPROLOL [Concomitant]
     Dosage: 50 MG, ER UNK
  3. PROTONIX [Concomitant]
     Dosage: 20 MG, UNK
  4. FLONASE                            /00908302/ [Concomitant]
     Dosage: UNK, 0.05%
  5. CLARITIN                           /00413701/ [Concomitant]
     Dosage: 10 MG, UNK
  6. BENADRYL                           /00000402/ [Concomitant]
     Dosage: 25 MG, UNK
  7. PEPCID                             /00305201/ [Concomitant]
     Dosage: 20 MG, UNK
  8. CALCIUM CITRATE [Concomitant]
     Dosage: 200 MG, UNK
  9. MELOXICAM [Concomitant]
     Dosage: 7.5 MG, UNK
  10. VITAMIN D                          /00107901/ [Concomitant]
     Dosage: 1000 UNIT, UNK
  11. ZYRTEC [Concomitant]
     Dosage: 10 MG, UNK

REACTIONS (6)
  - Injection site bruising [Not Recovered/Not Resolved]
  - Injection site pain [Not Recovered/Not Resolved]
  - Injection site reaction [Not Recovered/Not Resolved]
  - Injection site discolouration [Not Recovered/Not Resolved]
  - Injection site swelling [Not Recovered/Not Resolved]
  - Injection site erythema [Not Recovered/Not Resolved]
